FAERS Safety Report 7769690-X (Version None)
Quarter: 2011Q3

REPORT INFORMATION
  Report Type: 
  Country: None (occurrence: None)
  Receive Date: 20110922
  Receipt Date: 20110720
  Transmission Date: 20111222
  Serious: Yes (Hospitalization)
  Sender: FDA-Public Use
  Company Number: US-ASTRAZENECA-2009UW03525

PATIENT
  Age: 22796 Day
  Sex: Male
  Weight: 99.8 kg

DRUGS (12)
  1. COLACE [Concomitant]
     Dates: start: 20070501
  2. METHADONE HCL [Concomitant]
     Dates: start: 20070101
  3. CYMBALTA [Concomitant]
     Dates: start: 20050610
  4. SIMVASTATIN [Concomitant]
     Dates: start: 20070501
  5. GEODON [Concomitant]
     Dates: start: 20060101
  6. SKELAXIN [Concomitant]
     Dates: start: 20070501
  7. TRAZODONE HYDROCHLORIDE [Concomitant]
     Dates: start: 20040101, end: 20050101
  8. NEXIUM [Concomitant]
     Dates: start: 20070501
  9. ABILIFY [Concomitant]
     Dates: start: 20070101
  10. ZETIA [Concomitant]
     Dates: start: 20070501
  11. PROVIGIL [Concomitant]
     Dates: start: 20070501
  12. SEROQUEL [Suspect]
     Indication: DEPRESSION
     Route: 048
     Dates: start: 20050610, end: 20051213

REACTIONS (2)
  - CHEST PAIN [None]
  - TYPE 2 DIABETES MELLITUS [None]
